FAERS Safety Report 20579427 (Version 1)
Quarter: 2022Q1

REPORT INFORMATION
  Report Type: Spontaneous
  Country: US (occurrence: US)
  Receive Date: 20220310
  Receipt Date: 20220310
  Transmission Date: 20220423
  Serious: No
  Sender: FDA-Public Use
  Company Number: US-Santen Inc-2021-USA-010607

PATIENT
  Sex: Female

DRUGS (3)
  1. TOBRADEX ST [Suspect]
     Active Substance: DEXAMETHASONE\TOBRAMYCIN
     Indication: Eyelid disorder
     Dosage: 1 DROP, 3X/DAY
     Route: 047
  2. TOBRADEX ST [Suspect]
     Active Substance: DEXAMETHASONE\TOBRAMYCIN
     Indication: Eyelid cyst
  3. TOBRADEX ST [Suspect]
     Active Substance: DEXAMETHASONE\TOBRAMYCIN
     Indication: Swelling of eyelid

REACTIONS (3)
  - Drug ineffective [Recovered/Resolved]
  - Expired product administered [Recovered/Resolved]
  - Swelling of eyelid [Not Recovered/Not Resolved]
